FAERS Safety Report 8134490-8 (Version None)
Quarter: 2012Q1

REPORT INFORMATION
  Report Type: 
  Country: None (occurrence: None)
  Receive Date: 20120214
  Receipt Date: 20120203
  Transmission Date: 20120608
  Serious: Yes (Hospitalization, Other)
  Sender: FDA-Public Use
  Company Number: BR-SANOFI-AVENTIS-2011SA063532

PATIENT
  Age: 67 Year
  Sex: Female
  Weight: 72 kg

DRUGS (11)
  1. METOPROLOL SUCCINATE [Concomitant]
     Route: 048
  2. SIMVASTATIN [Concomitant]
     Route: 048
  3. ISOSORBIDE MONONITRATE [Concomitant]
     Route: 048
  4. ENABLEX [Concomitant]
     Indication: URINARY INCONTINENCE
     Route: 048
  5. EUCERIN CREME [Concomitant]
     Indication: DRY SKIN
     Route: 061
  6. AMIODARONE HCL [Concomitant]
     Indication: ARRHYTHMIA
     Route: 048
  7. NITROFURANTOIN [Concomitant]
     Indication: PROPHYLAXIS URINARY TRACT INFECTION
     Route: 048
  8. ALL OTHER THERAPEUTIC PRODUCTS [Concomitant]
     Indication: DRY SKIN
     Route: 061
  9. LANTUS [Suspect]
     Indication: TYPE 2 DIABETES MELLITUS
     Dosage: 8 YEARS BACK
     Route: 058
     Dates: start: 20030101
  10. PANTOPRAZOLE [Concomitant]
     Route: 048
  11. DIOVAN HCT [Concomitant]
     Indication: BLOOD PRESSURE
     Route: 048

REACTIONS (16)
  - INJECTION SITE MASS [None]
  - PAIN IN EXTREMITY [None]
  - INJECTION SITE HAEMATOMA [None]
  - ACUTE MYOCARDIAL INFARCTION [None]
  - MOBILITY DECREASED [None]
  - SKIN INDURATION [None]
  - DIZZINESS [None]
  - DERMATITIS [None]
  - METASTATIC NEOPLASM [None]
  - URINARY TRACT INFECTION [None]
  - OEDEMA PERIPHERAL [None]
  - FEELING ABNORMAL [None]
  - NAUSEA [None]
  - DIABETIC NEUROPATHY [None]
  - INJECTION SITE REACTION [None]
  - HYPERGLYCAEMIA [None]
